FAERS Safety Report 26193316 (Version 1)
Quarter: 2025Q4

REPORT INFORMATION
  Report Type: Spontaneous
  Country: US (occurrence: None)
  Receive Date: 20251223
  Receipt Date: 20251223
  Transmission Date: 20260118
  Serious: Yes (Hospitalization)
  Sender: FDA-CTU
  Company Number: None

PATIENT
  Age: 74 Year
  Sex: Female
  Weight: 78.75 kg

DRUGS (2)
  1. CARVYKTI [Suspect]
     Active Substance: CILTACABTAGENE AUTOLEUCEL
     Indication: Plasma cell myeloma
     Dosage: 70 ML INTRAVENOUS DRIP
     Route: 041
     Dates: start: 20251209, end: 20251209
  2. CARVYKTI [Concomitant]
     Active Substance: CILTACABTAGENE AUTOLEUCEL
     Dates: start: 20251209, end: 20251209

REACTIONS (1)
  - Cytokine release syndrome [None]

NARRATIVE: CASE EVENT DATE: 20251217
